FAERS Safety Report 6716973-8 (Version None)
Quarter: 2010Q2

REPORT INFORMATION
  Report Type: 
  Country: None (occurrence: None)
  Receive Date: 20100506
  Receipt Date: 20100506
  Transmission Date: 20101027
  Serious: No
  Sender: FDA-Public Use
  Company Number: None

PATIENT

DRUGS (1)
  1. CLONIDINE HCL [Suspect]
     Indication: HYPERTENSION
     Dosage: 1 TAB. 3 X DAY 6AM 1/2 8:30PMM 1 TAB
     Dates: start: 20100201

REACTIONS (6)
  - ABDOMINAL DISCOMFORT [None]
  - ABDOMINAL PAIN UPPER [None]
  - DYSGEUSIA [None]
  - ECONOMIC PROBLEM [None]
  - FALL [None]
  - SALIVARY GLAND DISORDER [None]
